FAERS Safety Report 11335462 (Version 1)
Quarter: 2015Q3

REPORT INFORMATION
  Report Type: Spontaneous
  Country: US (occurrence: None)
  Receive Date: 20150731
  Receipt Date: 20150731
  Transmission Date: 20151125
  Serious: No
  Sender: FDA-Public Use
  Company Number: None

PATIENT
  Sex: Female
  Weight: 89.81 kg

DRUGS (4)
  1. PROTONIX [Suspect]
     Active Substance: PANTOPRAZOLE SODIUM
  2. GENERIC NEXIUM 40MG [Suspect]
     Active Substance: ESOMEPRAZOLE MAGNESIUM
  3. PREVACID [Suspect]
     Active Substance: LANSOPRAZOLE
  4. PRILOSEC [Suspect]
     Active Substance: OMEPRAZOLE MAGNESIUM

REACTIONS (2)
  - Adverse event [None]
  - Drug ineffective [None]

NARRATIVE: CASE EVENT DATE: 2010
